FAERS Safety Report 6249094-1 (Version None)
Quarter: 2009Q2

REPORT INFORMATION
  Report Type: 
  Country: None (occurrence: None)
  Receive Date: 20090629
  Receipt Date: 20090619
  Transmission Date: 20091009
  Serious: Yes (Other)
  Sender: FDA-Public Use
  Company Number: AU-ROCHE-634489

PATIENT
  Sex: Male
  Weight: 40 kg

DRUGS (8)
  1. CELLCEPT [Suspect]
     Route: 048
     Dates: start: 20020101, end: 20090527
  2. NEORAL [Concomitant]
     Route: 048
     Dates: start: 20020101
  3. NEORAL [Concomitant]
     Dosage: DOSE INCREASED
     Route: 048
  4. PREDNISOLONE [Concomitant]
     Route: 048
     Dates: start: 20020101
  5. PREDNISOLONE [Concomitant]
     Dosage: DOSE INCREASED
     Route: 048
  6. ESOMEPRAZOLE MAGNESIUM [Concomitant]
     Route: 048
  7. CALTRATE [Concomitant]
     Indication: HYPOCALCAEMIA
     Dosage: DOSE: 2
     Route: 048
  8. MAGMIN [Concomitant]
     Indication: HYPOMAGNESAEMIA
     Dosage: DOSE: 1
     Route: 048
     Dates: start: 20090501

REACTIONS (5)
  - DIARRHOEA [None]
  - ELECTROLYTE IMBALANCE [None]
  - INTESTINAL VILLI ATROPHY [None]
  - MALABSORPTION [None]
  - WEIGHT DECREASED [None]
